FAERS Safety Report 8399598-0 (Version None)
Quarter: 2012Q2

REPORT INFORMATION
  Report Type: 
  Country: None (occurrence: None)
  Receive Date: 20120531
  Receipt Date: 20120516
  Transmission Date: 20120825
  Serious: Yes (Other)
  Sender: FDA-Public Use
  Company Number: US-ARROW GEN-2012-08706

PATIENT
  Age: 35 Year
  Sex: Male

DRUGS (2)
  1. FLUOXETINE HYDROCHLORIDE [Suspect]
     Indication: POST-TRAUMATIC STRESS DISORDER
     Dosage: 20 MG, DAILY
     Route: 065
  2. LORAZEPAM [Suspect]
     Indication: POST-TRAUMATIC STRESS DISORDER
     Dosage: 0.5 MG, PRN
     Route: 065

REACTIONS (3)
  - WEIGHT INCREASED [None]
  - SLEEP APNOEA SYNDROME [None]
  - HYPERTENSION [None]
